FAERS Safety Report 26147186 (Version 1)
Quarter: 2025Q4

REPORT INFORMATION
  Report Type: Spontaneous
  Country: EU (occurrence: EU)
  Receive Date: 20251211
  Receipt Date: 20251211
  Transmission Date: 20260118
  Serious: Yes (Other)
  Sender: MYLAN
  Company Number: EU-UCBSA-2025074151

PATIENT
  Sex: Female

DRUGS (76)
  1. LEVETIRACETAM [Suspect]
     Active Substance: LEVETIRACETAM
     Indication: Seizure
     Dosage: UNK
  2. LEVETIRACETAM [Suspect]
     Active Substance: LEVETIRACETAM
     Dosage: UNK
     Route: 065
  3. LEVETIRACETAM [Suspect]
     Active Substance: LEVETIRACETAM
     Dosage: UNK
     Route: 065
  4. LEVETIRACETAM [Suspect]
     Active Substance: LEVETIRACETAM
     Dosage: UNK
  5. LACOSAMIDE [Suspect]
     Active Substance: LACOSAMIDE
     Indication: Seizure
     Dosage: 700 MILLIGRAM, QD (700 MILLIGRAM PER DAY)
  6. LACOSAMIDE [Suspect]
     Active Substance: LACOSAMIDE
     Dosage: 700 MILLIGRAM, QD (700 MILLIGRAM PER DAY)
  7. LACOSAMIDE [Suspect]
     Active Substance: LACOSAMIDE
     Dosage: 700 MILLIGRAM, QD (700 MILLIGRAM PER DAY)
     Route: 065
  8. LACOSAMIDE [Suspect]
     Active Substance: LACOSAMIDE
     Dosage: 700 MILLIGRAM, QD (700 MILLIGRAM PER DAY)
     Route: 065
  9. LACOSAMIDE [Suspect]
     Active Substance: LACOSAMIDE
     Dosage: 200 MILLIGRAM, QD (200 MILLIGRAM PER DAY (200 MILLIGRAM PER DAY))
  10. LACOSAMIDE [Suspect]
     Active Substance: LACOSAMIDE
     Dosage: 200 MILLIGRAM, QD (200 MILLIGRAM PER DAY (200 MILLIGRAM PER DAY))
  11. LACOSAMIDE [Suspect]
     Active Substance: LACOSAMIDE
     Dosage: 200 MILLIGRAM, QD (200 MILLIGRAM PER DAY (200 MILLIGRAM PER DAY))
     Route: 065
  12. LACOSAMIDE [Suspect]
     Active Substance: LACOSAMIDE
     Dosage: 200 MILLIGRAM, QD (200 MILLIGRAM PER DAY (200 MILLIGRAM PER DAY))
     Route: 065
  13. CARBAMAZEPINE [Concomitant]
     Active Substance: CARBAMAZEPINE
     Indication: Product used for unknown indication
     Dosage: UNK
  14. CARBAMAZEPINE [Concomitant]
     Active Substance: CARBAMAZEPINE
     Dosage: UNK
     Route: 065
  15. CARBAMAZEPINE [Concomitant]
     Active Substance: CARBAMAZEPINE
     Dosage: UNK
     Route: 065
  16. CARBAMAZEPINE [Concomitant]
     Active Substance: CARBAMAZEPINE
     Dosage: UNK
  17. OXCARBAZEPINE [Concomitant]
     Active Substance: OXCARBAZEPINE
     Indication: Product used for unknown indication
     Dosage: UNK
  18. OXCARBAZEPINE [Concomitant]
     Active Substance: OXCARBAZEPINE
     Dosage: UNK
     Route: 065
  19. OXCARBAZEPINE [Concomitant]
     Active Substance: OXCARBAZEPINE
     Dosage: UNK
     Route: 065
  20. OXCARBAZEPINE [Concomitant]
     Active Substance: OXCARBAZEPINE
     Dosage: UNK
  21. VALPROATE [Concomitant]
     Active Substance: VALPROIC ACID
     Indication: Product used for unknown indication
     Dosage: 1000 MILLIGRAM, QD (1000 MILLIGRAM PER DAY)
  22. VALPROATE [Concomitant]
     Active Substance: VALPROIC ACID
     Dosage: 1000 MILLIGRAM, QD (1000 MILLIGRAM PER DAY)
  23. VALPROATE [Concomitant]
     Active Substance: VALPROIC ACID
     Dosage: 1000 MILLIGRAM, QD (1000 MILLIGRAM PER DAY)
     Route: 065
  24. VALPROATE [Concomitant]
     Active Substance: VALPROIC ACID
     Dosage: 1000 MILLIGRAM, QD (1000 MILLIGRAM PER DAY)
     Route: 065
  25. VALPROATE [Concomitant]
     Active Substance: VALPROIC ACID
     Dosage: 1500 MILLIGRAM, QD (1000 MILLIGRAM PER DAY)
  26. VALPROATE [Concomitant]
     Active Substance: VALPROIC ACID
     Dosage: 1500 MILLIGRAM, QD (1000 MILLIGRAM PER DAY)
  27. VALPROATE [Concomitant]
     Active Substance: VALPROIC ACID
     Dosage: 1500 MILLIGRAM, QD (1000 MILLIGRAM PER DAY)
     Route: 065
  28. VALPROATE [Concomitant]
     Active Substance: VALPROIC ACID
     Dosage: 1500 MILLIGRAM, QD (1000 MILLIGRAM PER DAY)
     Route: 065
  29. CLOBAZAM [Concomitant]
     Active Substance: CLOBAZAM
     Indication: Product used for unknown indication
     Dosage: UNK
  30. CLOBAZAM [Concomitant]
     Active Substance: CLOBAZAM
     Dosage: UNK
     Route: 065
  31. CLOBAZAM [Concomitant]
     Active Substance: CLOBAZAM
     Dosage: UNK
     Route: 065
  32. CLOBAZAM [Concomitant]
     Active Substance: CLOBAZAM
     Dosage: UNK
  33. LAMOTRIGINE [Concomitant]
     Active Substance: LAMOTRIGINE
     Indication: Product used for unknown indication
     Dosage: UNK
  34. LAMOTRIGINE [Concomitant]
     Active Substance: LAMOTRIGINE
     Dosage: UNK
     Route: 065
  35. LAMOTRIGINE [Concomitant]
     Active Substance: LAMOTRIGINE
     Dosage: UNK
     Route: 065
  36. LAMOTRIGINE [Concomitant]
     Active Substance: LAMOTRIGINE
     Dosage: UNK
  37. GABAPENTIN [Concomitant]
     Active Substance: GABAPENTIN
     Indication: Product used for unknown indication
     Dosage: UNK
  38. GABAPENTIN [Concomitant]
     Active Substance: GABAPENTIN
     Dosage: UNK
     Route: 065
  39. GABAPENTIN [Concomitant]
     Active Substance: GABAPENTIN
     Dosage: UNK
     Route: 065
  40. GABAPENTIN [Concomitant]
     Active Substance: GABAPENTIN
     Dosage: UNK
  41. TOPIRAMATE [Concomitant]
     Active Substance: TOPIRAMATE
     Indication: Product used for unknown indication
     Dosage: UNK
  42. TOPIRAMATE [Concomitant]
     Active Substance: TOPIRAMATE
     Dosage: UNK
     Route: 065
  43. TOPIRAMATE [Concomitant]
     Active Substance: TOPIRAMATE
     Dosage: UNK
     Route: 065
  44. TOPIRAMATE [Concomitant]
     Active Substance: TOPIRAMATE
     Dosage: UNK
  45. PREGABALIN [Concomitant]
     Active Substance: PREGABALIN
     Indication: Product used for unknown indication
     Dosage: UNK
  46. PREGABALIN [Concomitant]
     Active Substance: PREGABALIN
     Dosage: UNK
     Route: 065
  47. PREGABALIN [Concomitant]
     Active Substance: PREGABALIN
     Dosage: UNK
     Route: 065
  48. PREGABALIN [Concomitant]
     Active Substance: PREGABALIN
     Dosage: UNK
  49. VIGABATRIN [Concomitant]
     Active Substance: VIGABATRIN
     Indication: Product used for unknown indication
     Dosage: UNK
  50. VIGABATRIN [Concomitant]
     Active Substance: VIGABATRIN
     Dosage: UNK
     Route: 065
  51. VIGABATRIN [Concomitant]
     Active Substance: VIGABATRIN
     Dosage: UNK
     Route: 065
  52. VIGABATRIN [Concomitant]
     Active Substance: VIGABATRIN
     Dosage: UNK
  53. PHENOBARBITAL [Concomitant]
     Active Substance: PHENOBARBITAL
     Indication: Product used for unknown indication
     Dosage: UNK
  54. PHENOBARBITAL [Concomitant]
     Active Substance: PHENOBARBITAL
     Dosage: UNK
     Route: 065
  55. PHENOBARBITAL [Concomitant]
     Active Substance: PHENOBARBITAL
     Dosage: UNK
     Route: 065
  56. PHENOBARBITAL [Concomitant]
     Active Substance: PHENOBARBITAL
     Dosage: UNK
  57. ETHOSUXIMIDE [Concomitant]
     Active Substance: ETHOSUXIMIDE
     Indication: Product used for unknown indication
     Dosage: UNK
  58. ETHOSUXIMIDE [Concomitant]
     Active Substance: ETHOSUXIMIDE
     Dosage: UNK
     Route: 065
  59. ETHOSUXIMIDE [Concomitant]
     Active Substance: ETHOSUXIMIDE
     Dosage: UNK
     Route: 065
  60. ETHOSUXIMIDE [Concomitant]
     Active Substance: ETHOSUXIMIDE
     Dosage: UNK
  61. TIAGABINE [Concomitant]
     Active Substance: TIAGABINE
     Indication: Product used for unknown indication
     Dosage: UNK
  62. TIAGABINE [Concomitant]
     Active Substance: TIAGABINE
     Dosage: UNK
     Route: 065
  63. TIAGABINE [Concomitant]
     Active Substance: TIAGABINE
     Dosage: UNK
     Route: 065
  64. TIAGABINE [Concomitant]
     Active Substance: TIAGABINE
     Dosage: UNK
  65. PRIMIDONE [Concomitant]
     Active Substance: PRIMIDONE
     Indication: Product used for unknown indication
     Dosage: UNK
  66. PRIMIDONE [Concomitant]
     Active Substance: PRIMIDONE
     Dosage: UNK
     Route: 065
  67. PRIMIDONE [Concomitant]
     Active Substance: PRIMIDONE
     Dosage: UNK
     Route: 065
  68. PRIMIDONE [Concomitant]
     Active Substance: PRIMIDONE
     Dosage: UNK
  69. CENOBAMATE [Concomitant]
     Active Substance: CENOBAMATE
     Indication: Product used for unknown indication
     Dosage: 200 MILLIGRAM, QD (200 MILLIGRAM PER DAY)
  70. CENOBAMATE [Concomitant]
     Active Substance: CENOBAMATE
     Dosage: 200 MILLIGRAM, QD (200 MILLIGRAM PER DAY)
  71. CENOBAMATE [Concomitant]
     Active Substance: CENOBAMATE
     Dosage: 200 MILLIGRAM, QD (200 MILLIGRAM PER DAY)
     Route: 065
  72. CENOBAMATE [Concomitant]
     Active Substance: CENOBAMATE
     Dosage: 200 MILLIGRAM, QD (200 MILLIGRAM PER DAY)
     Route: 065
  73. CENOBAMATE [Concomitant]
     Active Substance: CENOBAMATE
     Dosage: 300 MILLIGRAM, QD (300 MILLIGRAM PER DAY)
  74. CENOBAMATE [Concomitant]
     Active Substance: CENOBAMATE
     Dosage: 300 MILLIGRAM, QD (300 MILLIGRAM PER DAY)
  75. CENOBAMATE [Concomitant]
     Active Substance: CENOBAMATE
     Dosage: 300 MILLIGRAM, QD (300 MILLIGRAM PER DAY)
     Route: 065
  76. CENOBAMATE [Concomitant]
     Active Substance: CENOBAMATE
     Dosage: 300 MILLIGRAM, QD (300 MILLIGRAM PER DAY)
     Route: 065

REACTIONS (9)
  - Tonic convulsion [Unknown]
  - Myoclonic epilepsy [Unknown]
  - Seizure [Unknown]
  - Generalised tonic-clonic seizure [Unknown]
  - Atonic seizures [Unknown]
  - Behaviour disorder [Unknown]
  - Myoclonus [Unknown]
  - Cognitive disorder [Unknown]
  - Off label use [Unknown]
